FAERS Safety Report 8547294-9 (Version None)
Quarter: 2012Q3

REPORT INFORMATION
  Report Type: 
  Country: None (occurrence: None)
  Receive Date: 20120727
  Receipt Date: 20120314
  Transmission Date: 20120928
  Serious: No
  Sender: FDA-Public Use
  Company Number: US-ASTRAZENECA-2012SE17931

PATIENT
  Age: 46 Year
  Sex: Male
  Weight: 81.6 kg

DRUGS (5)
  1. DEPAKOTE [Concomitant]
  2. SEROQUEL XR [Suspect]
     Indication: ANXIETY
     Route: 048
     Dates: start: 20120101
  3. LORAZEPAM [Concomitant]
  4. SEROQUEL XR [Suspect]
     Indication: BIPOLAR DISORDER
     Route: 048
     Dates: start: 20120101
  5. ATENOLOL [Concomitant]

REACTIONS (6)
  - FEAR [None]
  - ANXIETY [None]
  - WITHDRAWAL SYNDROME [None]
  - CONDITION AGGRAVATED [None]
  - TREMOR [None]
  - DRUG DOSE OMISSION [None]
